FAERS Safety Report 5515562-0 (Version None)
Quarter: 2007Q4

REPORT INFORMATION
  Report Type: 
  Country: None (occurrence: None)
  Receive Date: 20071113
  Receipt Date: 20070606
  Transmission Date: 20080405
  Serious: Yes (Other)
  Sender: FDA-Public Use
  Company Number: A0654392A

PATIENT
  Age: 74 Year
  Sex: Male

DRUGS (3)
  1. COREG [Suspect]
     Dosage: 6.25MG TWICE PER DAY
     Route: 048
     Dates: start: 20070201, end: 20070603
  2. ZOCOR [Concomitant]
  3. ENALAPRIL MALEATE [Concomitant]

REACTIONS (2)
  - ANAEMIA [None]
  - COUGH [None]
